FAERS Safety Report 6103004-6 (Version None)
Quarter: 2009Q1

REPORT INFORMATION
  Report Type: 
  Country: None (occurrence: None)
  Receive Date: 20090305
  Receipt Date: 20090225
  Transmission Date: 20090719
  Serious: Yes (Hospitalization)
  Sender: FDA-Public Use
  Company Number: PHEH2009US02076

PATIENT
  Sex: Male

DRUGS (1)
  1. TEKTURNA HCT [Suspect]
     Route: 048

REACTIONS (2)
  - DYSURIA [None]
  - URINARY INCONTINENCE [None]
